FAERS Safety Report 13143344 (Version 1)
Quarter: 2017Q1

REPORT INFORMATION
  Report Type: Spontaneous
  Country: US (occurrence: US)
  Receive Date: 20170124
  Receipt Date: 20170124
  Transmission Date: 20170428
  Serious: No
  Sender: FDA-Public Use
  Company Number: US-TEVA-726008ACC

PATIENT
  Sex: Female
  Weight: 64.01 kg

DRUGS (6)
  1. CRANBERRY. [Concomitant]
     Active Substance: CRANBERRY
  2. MULTIVITAMINS [Concomitant]
     Active Substance: VITAMINS
  3. TRI-LEVLEN [Concomitant]
     Active Substance: ETHINYL ESTRADIOL\LEVONORGESTREL
  4. PARAGARD T 380A [Suspect]
     Active Substance: COPPER
     Indication: CONTRACEPTION
     Dates: start: 20161202, end: 20161220
  5. LEVOTHYROXINE SODIUM 75 MCG [Concomitant]
  6. CLARITIN-D 240 MG [Concomitant]

REACTIONS (3)
  - Device expulsion [Recovered/Resolved]
  - Vaginal discharge [Unknown]
  - Muscle spasms [Unknown]
